FAERS Safety Report 12322238 (Version 2)
Quarter: 2018Q1

REPORT INFORMATION
  Report Type: Report from Study
  Country: DE (occurrence: DE)
  Receive Date: 20160502
  Receipt Date: 20180330
  Transmission Date: 20180508
  Serious: Yes (Death, Life-Threatening)
  Sender: FDA-Public Use
  Company Number: PHHY2016DE059498

PATIENT
  Sex: Female
  Weight: 87 kg

DRUGS (4)
  1. AFINITOR [Suspect]
     Active Substance: EVEROLIMUS
     Dosage: 2.5 MG, QD
     Route: 048
     Dates: start: 20150930
  2. AFINITOR [Suspect]
     Active Substance: EVEROLIMUS
     Dosage: 10 MG, QD
     Route: 048
     Dates: start: 20150716, end: 20150901
  3. AFINITOR [Suspect]
     Active Substance: EVEROLIMUS
     Indication: BREAST CANCER METASTATIC
     Dosage: 5 MG, QD
     Route: 048
     Dates: start: 20150625, end: 20150715
  4. EXEMESTANE. [Concomitant]
     Active Substance: EXEMESTANE
     Indication: BREAST CANCER METASTATIC
     Dosage: 25 MG, QD
     Route: 048
     Dates: start: 20150625, end: 20151020

REACTIONS (2)
  - Breast cancer metastatic [Fatal]
  - Malignant neoplasm progression [Fatal]

NARRATIVE: CASE EVENT DATE: 20160419
